FAERS Safety Report 15651054 (Version 1)
Quarter: 2018Q4

REPORT INFORMATION
  Report Type: Spontaneous
  Country: GB (occurrence: GB)
  Receive Date: 20181123
  Receipt Date: 20181123
  Transmission Date: 20190205
  Serious: Yes (Other)
  Sender: FDA-Public Use
  Company Number: GB-ACCORD-093489

PATIENT
  Age: 31 Year
  Sex: Female
  Weight: 74.6 kg

DRUGS (23)
  1. ONDANSETRON [Concomitant]
     Active Substance: ONDANSETRON
     Route: 042
     Dates: start: 20171213
  2. LANSOPRAZOLE. [Concomitant]
     Active Substance: LANSOPRAZOLE
     Route: 048
     Dates: start: 20171225
  3. PREGABALIN. [Concomitant]
     Active Substance: PREGABALIN
     Route: 048
     Dates: start: 20171225, end: 20180102
  4. CERAZETTE [DESOGESTREL] [Concomitant]
     Active Substance: DESOGESTREL
     Route: 048
     Dates: start: 20171218, end: 20171221
  5. GAVISCON [Concomitant]
     Active Substance: ALUMINUM HYDROXIDE\MAGNESIUM CARBONATE
     Route: 048
     Dates: start: 20171226, end: 20180104
  6. DOCUSATE/DOCUSATE CALCIUM/DOCUSATE POTASSIUM/DOCUSATE SODIUM [Concomitant]
     Route: 048
     Dates: start: 20171225
  7. TINZAPARIN/TINZAPARIN SODIUM [Concomitant]
     Route: 058
     Dates: start: 20171213
  8. NAPROXEN. [Concomitant]
     Active Substance: NAPROXEN
     Route: 048
     Dates: start: 20171217
  9. PARACETAMOL [Concomitant]
     Active Substance: ACETAMINOPHEN
     Route: 048
     Dates: start: 20171216, end: 20171221
  10. NITROFURANTOIN/NITROFURANTOIN SODIUM [Concomitant]
     Dosage: AT NIGHT.
     Route: 048
     Dates: start: 20171213
  11. LACTULOSE. [Concomitant]
     Active Substance: LACTULOSE
     Dosage: 3.1-3.7G/5ML.
     Route: 048
     Dates: start: 20171216, end: 20171221
  12. TRAMADOL/TRAMADOL HYDROCHLORIDE [Concomitant]
     Route: 048
     Dates: start: 20171216
  13. DIAZEPAM. [Concomitant]
     Active Substance: DIAZEPAM
     Route: 048
     Dates: start: 20171216
  14. FLEET ENEMA [Concomitant]
     Active Substance: SODIUM PHOSPHATE, DIBASIC\SODIUM PHOSPHATE, MONOBASIC
     Route: 054
     Dates: start: 20171225
  15. CHLORPHENAMINE/CHLORPHENAMINE MALEATE/CHLORPHENAMINE RESINATE/CHLORPHENAMINE TANNATE [Concomitant]
     Route: 048
     Dates: start: 20171225
  16. MACROGOL/MACROGOL STEARATE [Concomitant]
     Route: 048
     Dates: start: 20171219
  17. HYOSCINE [Concomitant]
     Active Substance: SCOPOLAMINE
     Route: 048
     Dates: start: 20171216
  18. FLUCLOXACILLIN [Concomitant]
     Active Substance: FLUCLOXACILLIN
     Route: 048
     Dates: start: 20171225
  19. IBUPROFEN. [Concomitant]
     Active Substance: IBUPROFEN
     Route: 048
     Dates: start: 20171216, end: 20171217
  20. MORPHINE [Concomitant]
     Active Substance: MORPHINE
     Dosage: ALSO FROM12-DEC-2017 TO 14-DEC-2017(2 DAYS) AT DOSE OF 10MG
     Route: 048
     Dates: start: 20171216, end: 20171221
  21. AMITRIPTYLINE [Suspect]
     Active Substance: AMITRIPTYLINE
     Indication: PRODUCT USED FOR UNKNOWN INDICATION
     Dosage: AT NIGHT
     Route: 048
     Dates: start: 20180102, end: 20180104
  22. CASSIA [Concomitant]
     Dosage: AT NIGHT.
     Route: 048
     Dates: start: 20171219, end: 20171221
  23. DERMOL [Concomitant]
     Active Substance: BENZALKONIUM CHLORIDE\CHLORHEXIDINE HYDROCHLORIDE\ISOPROPYL MYRISTATE\PARAFFIN
     Route: 061
     Dates: start: 20171225

REACTIONS (1)
  - Sedation [Recovered/Resolved]

NARRATIVE: CASE EVENT DATE: 20180102
